FAERS Safety Report 4336926-7 (Version None)
Quarter: 2004Q2

REPORT INFORMATION
  Report Type: 
  Country: None (occurrence: None)
  Receive Date: 20040408
  Receipt Date: 20040326
  Transmission Date: 20050107
  Serious: Yes (Other)
  Sender: FDA-Public Use
  Company Number: 2004020943

PATIENT
  Age: 74 Year
  Sex: Male
  Weight: 88.905 kg

DRUGS (11)
  1. LIPITOR [Suspect]
     Indication: BLOOD TRIGLYCERIDES INCREASED
     Dosage: 20 MG (DAILY), ORAL
     Route: 048
     Dates: start: 20030101, end: 20040313
  2. ATENOLOL [Concomitant]
  3. LISINOPRIL [Concomitant]
  4. METFORMIN HCL [Concomitant]
  5. ACARBOSE (ACARBOSE) [Concomitant]
  6. BACTRIM [Concomitant]
  7. TAMSULOSIN (TAMSULOSIN) [Concomitant]
  8. PAROXETINE HCL [Concomitant]
  9. POTASSIUM (POTASSIUM) [Concomitant]
  10. FOLIC ACID [Concomitant]
  11. VITAMINS NOS (VITAMINS NOS) [Concomitant]

REACTIONS (7)
  - ABASIA [None]
  - ASTHENIA [None]
  - BODY HEIGHT DECREASED [None]
  - CHOKING [None]
  - COUGH [None]
  - LOCALISED INFECTION [None]
  - POSTOPERATIVE INFECTION [None]
